FAERS Safety Report 5196318-8 (Version None)
Quarter: 2007Q1

REPORT INFORMATION
  Report Type: 
  Country: None (occurrence: None)
  Receive Date: 20070102
  Receipt Date: 20061221
  Transmission Date: 20070707
  Serious: Yes (Other)
  Sender: FDA-Public Use
  Company Number: TR-PFIZER INC-2006155368

PATIENT
  Age: 16 Year
  Weight: 80 kg

DRUGS (1)
  1. VORICONAZOLE [Suspect]
     Dosage: TEXT:3-4MG/KG
     Route: 042

REACTIONS (4)
  - BILIRUBIN CONJUGATED INCREASED [None]
  - DELIRIUM [None]
  - HALLUCINATION [None]
  - MENTAL IMPAIRMENT [None]
